FAERS Safety Report 5921115-2 (Version None)
Quarter: 2008Q4

REPORT INFORMATION
  Report Type: 
  Country: None (occurrence: None)
  Receive Date: 20081016
  Receipt Date: 20081006
  Transmission Date: 20090506
  Serious: Yes (Hospitalization)
  Sender: FDA-Public Use
  Company Number: ES-ELI_LILLY_AND_COMPANY-ES200810001702

PATIENT
  Age: 67 Year
  Sex: Female

DRUGS (6)
  1. CYMBALTA [Suspect]
     Indication: DEPRESSION
     Dosage: 30 MG, DAILY (1/D)
     Route: 048
     Dates: start: 20080316, end: 20080416
  2. PANTOPRAZOLE SODIUM [Concomitant]
     Dosage: 40 MG, DAILY (1/D)
     Route: 048
  3. LYRICA [Concomitant]
     Dosage: 25 MG, UNKNOWN
     Route: 048
  4. VERAPAMIL HCL [Concomitant]
     Dosage: 240 MG, UNKNOWN
     Route: 048
  5. SEGURIL [Concomitant]
     Dosage: 40 MG, DAILY (1/D)
     Route: 048
  6. TRANKIMAZIN [Concomitant]
     Dosage: 0.5 MG, DAILY (1/D)
     Route: 048

REACTIONS (4)
  - CONTUSION [None]
  - FALL [None]
  - GAIT DISTURBANCE [None]
  - MYOCLONUS [None]
